FAERS Safety Report 9588988 (Version 1)
Quarter: 2013Q4

REPORT INFORMATION
  Report Type: Spontaneous
  Country: US (occurrence: US)
  Receive Date: 20131003
  Receipt Date: 20131003
  Transmission Date: 20140711
  Serious: No
  Sender: FDA-Public Use
  Company Number: US-AMGEN-USASP2012067178

PATIENT
  Sex: Female
  Weight: 74.83 kg

DRUGS (15)
  1. ENBREL [Suspect]
     Indication: RHEUMATOID ARTHRITIS
     Dosage: 50 MG, QWK
     Route: 058
  2. LEFLUNOMIDE [Concomitant]
     Dosage: 10 MG, UNK
  3. HYDROXYCHLOROQUINE [Concomitant]
     Dosage: 200 MG, UNK
  4. CELEXA                             /00582602/ [Concomitant]
     Dosage: 10 MG, UNK
  5. METOPROLOL [Concomitant]
     Dosage: 25 MG, UNK
  6. TRICOR                             /00090101/ [Concomitant]
     Dosage: 48 MG, UNK
  7. HYDROCHLOROTH [Concomitant]
     Dosage: 12.5 MG, UNK
  8. ACIPHEX [Concomitant]
     Dosage: 20 MG, UNK
  9. NAPROXEN [Concomitant]
     Dosage: 250 MG, UNK
  10. LORATADINE [Concomitant]
     Dosage: 10 MG, UNK
  11. AMLODIPINE [Concomitant]
     Dosage: 5 MG, UNK
  12. MELATONIN [Concomitant]
     Dosage: 1 MG, UNK
  13. MULTIVITAMIN                       /00097801/ [Concomitant]
     Dosage: UNK
  14. FOLIC ACID [Concomitant]
     Dosage: UNK
  15. VITAMIN B-12 [Concomitant]
     Dosage: 5000 MUG, UNK

REACTIONS (2)
  - Injection site erythema [Unknown]
  - Injection site pruritus [Unknown]
